FAERS Safety Report 16988203 (Version 3)
Quarter: 2019Q4

REPORT INFORMATION
  Report Type: Spontaneous
  Country: US (occurrence: US)
  Receive Date: 20191104
  Receipt Date: 20191204
  Transmission Date: 20200122
  Serious: Yes (Other)
  Sender: FDA-Public Use
  Company Number: US-AUROBINDO-AUR-APL-2019-070483

PATIENT
  Age: 77 Year
  Sex: Female
  Weight: 49.89 kg

DRUGS (2)
  1. VERAPAMIL [Concomitant]
     Active Substance: VERAPAMIL HYDROCHLORIDE
     Indication: BLOOD PRESSURE MEASUREMENT
     Dosage: 180 MILLIGRAM, TWO TIMES A DAY
     Route: 065
  2. LOSARTAN POTASSIUM TABLETS USP 100MG [Suspect]
     Active Substance: LOSARTAN POTASSIUM
     Indication: HYPERTENSION
     Dosage: 100 MILLIGRAM, ONCE A DAY (HAD BEEN ON IT FOR MANY YEARS)
     Route: 048
     Dates: end: 20190517

REACTIONS (7)
  - Weight decreased [Recovering/Resolving]
  - Fatigue [Recovering/Resolving]
  - Near death experience [Recovering/Resolving]
  - Confusional state [Recovering/Resolving]
  - Hepatomegaly [Recovering/Resolving]
  - Gait disturbance [Recovering/Resolving]
  - Hepatic enzyme increased [Recovering/Resolving]

NARRATIVE: CASE EVENT DATE: 20190409
